FAERS Safety Report 4764290-8 (Version None)
Quarter: 2005Q3

REPORT INFORMATION
  Report Type: 
  Country: None (occurrence: None)
  Receive Date: 20050909
  Receipt Date: 20050902
  Transmission Date: 20060218
  Serious: Yes (Hospitalization)
  Sender: FDA-Public Use
  Company Number: JP-BOEHRINGER INGELHEIM PHARMACEUTICALS, INC.-2005-BP-15614YA

PATIENT
  Sex: Male

DRUGS (5)
  1. HARNAL [Suspect]
     Route: 048
  2. BUFFERIN [Concomitant]
     Route: 048
  3. ENALAPRIL [Concomitant]
     Route: 048
  4. SENNOSIDE [Concomitant]
     Route: 048
  5. CETILO [Concomitant]
     Route: 048

REACTIONS (1)
  - HEPATIC FUNCTION ABNORMAL [None]
